FAERS Safety Report 22161463 (Version 3)
Quarter: 2024Q1

REPORT INFORMATION
  Report Type: Report from Study
  Country: US (occurrence: US)
  Receive Date: 20230331
  Receipt Date: 20240226
  Transmission Date: 20240410
  Serious: Yes (Other)
  Sender: FDA-Public Use
  Company Number: US-BAXALTA-2016BLT006976AA

PATIENT
  Age: 12 Year
  Sex: Male
  Weight: 31.746 kg

DRUGS (7)
  1. ADVATE [Suspect]
     Active Substance: ANTIHEMOPHILIC FACTOR, HUMAN RECOMBINANT
     Indication: Factor VIII deficiency
     Dosage: 1750 INTERNATIONAL UNIT, 1/WEEK
     Route: 042
     Dates: start: 20131102
  2. ADVATE [Suspect]
     Active Substance: ANTIHEMOPHILIC FACTOR, HUMAN RECOMBINANT
     Indication: Factor VIII deficiency
     Dosage: 1750 INTERNATIONAL UNIT, 1/WEEK
     Route: 042
     Dates: start: 20131102
  3. ADVATE [Suspect]
     Active Substance: ANTIHEMOPHILIC FACTOR, HUMAN RECOMBINANT
     Indication: Factor VIII deficiency
     Dosage: 1750 INTERNATIONAL UNIT, 1/WEEK
     Route: 042
     Dates: start: 20131102
  4. ADVATE [Suspect]
     Active Substance: ANTIHEMOPHILIC FACTOR, HUMAN RECOMBINANT
     Indication: Haemorrhage
     Dosage: 3000 INTERNATIONAL UNIT
     Route: 042
  5. ADVATE [Suspect]
     Active Substance: ANTIHEMOPHILIC FACTOR, HUMAN RECOMBINANT
     Indication: Haemorrhage
     Dosage: 3000 INTERNATIONAL UNIT
     Route: 042
  6. ADVATE [Suspect]
     Active Substance: ANTIHEMOPHILIC FACTOR, HUMAN RECOMBINANT
     Indication: Haemorrhage
     Dosage: 3000 INTERNATIONAL UNIT
     Route: 042
  7. AMICAR [Concomitant]
     Active Substance: AMINOCAPROIC ACID
     Dosage: UNK
     Route: 065

REACTIONS (5)
  - Gingival bleeding [Unknown]
  - Pharyngeal haemorrhage [Unknown]
  - Blood urine present [Unknown]
  - Haemarthrosis [Unknown]
  - Tonsillar ulcer [Unknown]

NARRATIVE: CASE EVENT DATE: 20160919
